FAERS Safety Report 9522384 (Version 1)
Quarter: 2013Q1

REPORT INFORMATION
  Report Type: Spontaneous
  Country: US (occurrence: None)
  Receive Date: 20130305
  Receipt Date: 20130305
  Transmission Date: 20140127
  Serious: Yes (Hospitalization)
  Sender: FDA-Public Use
  Company Number: 163-21880-12031700

PATIENT
  Age: 73 Year
  Sex: Male
  Weight: 72.58 kg

DRUGS (15)
  1. REVLIMID (LENALIDOMIDE) (25 MILLIGRAM, CAPSULES) [Suspect]
     Indication: PLASMA CELL MYELOMA
     Dosage: 25 MG, DAILY X14 DAYS THEN 7 DAYS OFF, PO
     Route: 048
     Dates: start: 20120130
  2. ALPHAGAN (BRIMONIDINE TARTRATE) [Concomitant]
  3. LYRICA (PREGABALIN) [Concomitant]
  4. HYDROMORPHONE (HYDROMORPHONE) [Concomitant]
  5. PROTONIX [Concomitant]
  6. ACETAMINOPHEN (PARACETAMOL) [Concomitant]
  7. MIRALAX [Concomitant]
  8. CYMBALTA (DULOXETINE HYDROCHLORIDE) [Concomitant]
  9. FLOMAX [Concomitant]
  10. FENTANYL (FENTANYL) (POULTICE OR PATCH) [Concomitant]
  11. SENNA [Concomitant]
  12. NEUPOGEN (FILGRASTIM) [Concomitant]
  13. ZOFRAN (ONDANSETRON HYDROCHLORIDE) [Concomitant]
  14. REGLAN (METOCLOPRAMIDE) [Concomitant]
  15. DILAUDID (HYDROMORPHONE HYDROCHLORIDE) [Concomitant]

REACTIONS (8)
  - Staphylococcal bacteraemia [None]
  - Asthenia [None]
  - Fatigue [None]
  - Dyspnoea [None]
  - Dyspnoea exertional [None]
  - Pyrexia [None]
  - Chills [None]
  - Body temperature increased [None]
